FAERS Safety Report 23176049 (Version 1)
Quarter: 2023Q4

REPORT INFORMATION
  Report Type: Spontaneous
  Country: US (occurrence: US)
  Receive Date: 20231113
  Receipt Date: 20231113
  Transmission Date: 20240110
  Serious: Yes (Life-Threatening, Hospitalization, Other)
  Sender: FDA-Public Use
  Company Number: US-GRANULES-US-2023GRALIT00317

PATIENT
  Age: 22 Year

DRUGS (8)
  1. BUPROPION HYDROCHLORIDE [Suspect]
     Active Substance: BUPROPION HYDROCHLORIDE
     Indication: Anxiety disorder
     Route: 065
     Dates: start: 20211229
  2. BUPROPION HYDROCHLORIDE [Suspect]
     Active Substance: BUPROPION HYDROCHLORIDE
     Route: 065
     Dates: start: 20220301, end: 20220428
  3. DULOXETINE [Concomitant]
     Active Substance: DULOXETINE
     Indication: Product used for unknown indication
     Route: 065
     Dates: start: 20211229
  4. GABAPENTIN [Concomitant]
     Active Substance: GABAPENTIN
     Route: 065
     Dates: start: 20220112
  5. GABAPENTIN [Concomitant]
     Active Substance: GABAPENTIN
     Route: 065
     Dates: start: 20220210
  6. BOTULINUM TOXIN NOS [Concomitant]
     Active Substance: BOTULINUM TOXIN NOS
     Indication: Product used for unknown indication
     Route: 065
     Dates: start: 20220308
  7. AMANTADINE [Concomitant]
     Active Substance: AMANTADINE
     Indication: Post-traumatic headache
     Route: 065
     Dates: start: 20220405, end: 20220428
  8. ONDANSETRON [Concomitant]
     Active Substance: ONDANSETRON
     Indication: Product used for unknown indication
     Route: 065

REACTIONS (1)
  - Serotonin syndrome [Recovered/Resolved]
